FAERS Safety Report 18621683 (Version 2)
Quarter: 2021Q1

REPORT INFORMATION
  Report Type: Spontaneous
  Country: JP (occurrence: JP)
  Receive Date: 20201215
  Receipt Date: 20210105
  Transmission Date: 20210419
  Serious: Yes (Death, Other)
  Sender: FDA-Public Use
  Company Number: JP-SAKK-2020SA358350AA

PATIENT

DRUGS (2)
  1. TS?1 [Concomitant]
     Active Substance: GIMERACIL\OTERACIL\TEGAFUR
     Indication: GASTRIC CANCER
     Dosage: UNK
     Route: 065
  2. DOCETAXEL. [Suspect]
     Active Substance: DOCETAXEL
     Indication: GASTRIC CANCER
     Dosage: UNK
     Route: 041

REACTIONS (10)
  - Dyspnoea [Fatal]
  - Shock haemorrhagic [Fatal]
  - Malaise [Fatal]
  - Hypoxia [Fatal]
  - Depressed level of consciousness [Fatal]
  - Aeromonas infection [Fatal]
  - Respiratory tract haemorrhage [Fatal]
  - Respiratory failure [Fatal]
  - Bacterial sepsis [Fatal]
  - Haemorrhagic pneumonia [Fatal]
